FAERS Safety Report 26002530 (Version 2)
Quarter: 2025Q4

REPORT INFORMATION
  Report Type: Spontaneous
  Country: CN (occurrence: CN)
  Receive Date: 20251105
  Receipt Date: 20251121
  Transmission Date: 20260117
  Serious: Yes (Other)
  Sender: ALKEM
  Company Number: None

PATIENT
  Age: 27 Year
  Sex: Female

DRUGS (2)
  1. ITRACONAZOLE [Suspect]
     Active Substance: ITRACONAZOLE
     Indication: Product used for unknown indication
     Dosage: UNK
     Route: 048
  2. CLOTRIMAZOLE [Suspect]
     Active Substance: CLOTRIMAZOLE
     Indication: Product used for unknown indication
     Dosage: UNK
     Route: 065

REACTIONS (3)
  - Syncope [Unknown]
  - Rash [Unknown]
  - Drug hypersensitivity [Unknown]
